FAERS Safety Report 18506246 (Version 12)
Quarter: 2024Q1

REPORT INFORMATION
  Report Type: Report from Study
  Country: IT (occurrence: IT)
  Receive Date: 20201116
  Receipt Date: 20240206
  Transmission Date: 20240410
  Serious: Yes (Hospitalization, Other)
  Sender: FDA-Public Use
  Company Number: IT-SHIRE-IT201835379AA

PATIENT
  Age: 57 Year
  Sex: Male
  Weight: 100 kg

DRUGS (35)
  1. ADVATE [Suspect]
     Active Substance: ANTIHEMOPHILIC FACTOR, HUMAN RECOMBINANT
     Indication: Factor VIII deficiency
     Dosage: UNK
     Route: 042
     Dates: start: 20131128
  2. ADVATE [Suspect]
     Active Substance: ANTIHEMOPHILIC FACTOR, HUMAN RECOMBINANT
     Indication: Factor VIII deficiency
     Dosage: UNK
     Route: 042
     Dates: start: 20131128
  3. ADVATE [Suspect]
     Active Substance: ANTIHEMOPHILIC FACTOR, HUMAN RECOMBINANT
     Indication: Factor VIII deficiency
     Dosage: UNK
     Route: 042
     Dates: start: 20131128
  4. OMEPRAZOLE [Concomitant]
     Active Substance: OMEPRAZOLE
     Indication: Gastrooesophageal reflux disease
     Dosage: 20 MILLIGRAM, QD
     Route: 065
     Dates: start: 20161027, end: 20170213
  5. CANDESARTAN CILEXETIL\HYDROCHLOROTHIAZIDE [Concomitant]
     Active Substance: CANDESARTAN CILEXETIL\HYDROCHLOROTHIAZIDE
     Indication: Hypertension
     Dosage: UNK, UNK, QD
     Route: 065
     Dates: start: 201610
  6. DEXPANTHENOL [Concomitant]
     Active Substance: DEXPANTHENOL
     Indication: Gastrooesophageal reflux disease
     Dosage: 20 MILLILITER, QD
     Route: 065
     Dates: start: 20161027
  7. DEXPANTHENOL [Concomitant]
     Active Substance: DEXPANTHENOL
     Dosage: UNK
     Route: 065
     Dates: start: 20161027
  8. ACETAMINOPHEN [Concomitant]
     Active Substance: ACETAMINOPHEN
     Indication: Haematoma muscle
     Dosage: 1 GRAM, QD
     Route: 065
     Dates: start: 20140910, end: 20140910
  9. ACETAMINOPHEN [Concomitant]
     Active Substance: ACETAMINOPHEN
     Indication: Myalgia
  10. ACETAMINOPHEN\CODEINE PHOSPHATE [Concomitant]
     Active Substance: ACETAMINOPHEN\CODEINE PHOSPHATE
     Indication: Haematoma muscle
     Dosage: 1 GRAM, BID
     Route: 065
     Dates: start: 20140912, end: 201410
  11. ACETAMINOPHEN\CODEINE PHOSPHATE [Concomitant]
     Active Substance: ACETAMINOPHEN\CODEINE PHOSPHATE
     Indication: Myalgia
  12. ACETAMINOPHEN\CODEINE PHOSPHATE [Concomitant]
     Active Substance: ACETAMINOPHEN\CODEINE PHOSPHATE
     Indication: Arthralgia
  13. EPROSARTAN MESYLATE\HYDROCHLOROTHIAZIDE [Concomitant]
     Active Substance: EPROSARTAN MESYLATE\HYDROCHLOROTHIAZIDE
     Indication: Hypertension
     Dosage: 1 DOSAGE FORM, QD
     Route: 065
     Dates: start: 2009
  14. EPROSARTAN MESYLATE\HYDROCHLOROTHIAZIDE [Concomitant]
     Active Substance: EPROSARTAN MESYLATE\HYDROCHLOROTHIAZIDE
     Dosage: UNK, UNK, QD
     Route: 065
     Dates: start: 2020
  15. DICLOFENAC [Concomitant]
     Active Substance: DICLOFENAC
     Indication: Arthralgia
     Dosage: UNK
     Route: 065
     Dates: start: 2014
  16. OMEPRAZOLE [Concomitant]
     Active Substance: OMEPRAZOLE
     Indication: Dyspepsia
     Dosage: 20 MILLIGRAM, QD
     Route: 065
  17. OMEPRAZOLE [Concomitant]
     Active Substance: OMEPRAZOLE
     Indication: Gastrooesophageal reflux disease
     Dosage: 20 MILLIGRAM, QD
     Route: 065
     Dates: start: 20161027
  18. OMEPRAZOLE [Concomitant]
     Active Substance: OMEPRAZOLE
     Dosage: 40 MILLIGRAM, QD
     Route: 065
     Dates: start: 20190225
  19. OMEPRAZOLE [Concomitant]
     Active Substance: OMEPRAZOLE
     Dosage: 1 DOSAGE FORM
     Route: 065
  20. PERFALGAN [Concomitant]
     Active Substance: ACETAMINOPHEN
     Indication: Pain
     Dosage: 1 DOSAGE FORM, QD
     Route: 065
     Dates: start: 20140910, end: 20140910
  21. PERFALGAN [Concomitant]
     Active Substance: ACETAMINOPHEN
     Indication: Pyrexia
     Dosage: 1 VIAL, QD
     Route: 065
     Dates: start: 20180907, end: 20180907
  22. VANCOMYCIN [Concomitant]
     Active Substance: VANCOMYCIN
     Indication: Sepsis
     Dosage: 1.5 GRAM, TID
     Route: 065
     Dates: start: 20180907, end: 20180913
  23. ACETAMINOPHEN [Concomitant]
     Active Substance: ACETAMINOPHEN
     Indication: Pyrexia
     Dosage: 1000 MILLIGRAM, BID
     Route: 065
     Dates: start: 20180906, end: 20180906
  24. ACETAMINOPHEN [Concomitant]
     Active Substance: ACETAMINOPHEN
     Dosage: 1000 MILLIGRAM, QD
     Route: 065
     Dates: start: 20180907, end: 20180907
  25. MODURETIC 5-50 [Concomitant]
     Active Substance: AMILORIDE HYDROCHLORIDE\HYDROCHLOROTHIAZIDE
     Indication: Hypertension
     Dosage: UNK UNK, QD
     Route: 065
     Dates: start: 20180913, end: 20180913
  26. MODURETIC 5-50 [Concomitant]
     Active Substance: AMILORIDE HYDROCHLORIDE\HYDROCHLOROTHIAZIDE
     Indication: Polyuria
  27. MEROPENEM [Concomitant]
     Active Substance: MEROPENEM
     Indication: Sepsis
     Dosage: 1 GRAM, TID
     Route: 065
     Dates: start: 20180907, end: 20180913
  28. FUROSEMIDE [Concomitant]
     Active Substance: FUROSEMIDE
     Indication: Polyuria
     Dosage: 1 VIAL, QD
     Route: 065
     Dates: start: 20180908, end: 20180910
  29. HYDROCORTISONE SODIUM SUCCINATE [Concomitant]
     Active Substance: HYDROCORTISONE SODIUM SUCCINATE
     Indication: Sepsis
     Dosage: 500 MILLIGRAM, QD
     Route: 065
     Dates: start: 20180907, end: 20180907
  30. ENOXAPARIN [Concomitant]
     Active Substance: ENOXAPARIN
     Indication: Anticoagulant therapy
     Dosage: 4000 INTERNATIONAL UNIT, QD
     Route: 065
     Dates: start: 20190225
  31. CIPROFLOXACIN [Concomitant]
     Active Substance: CIPROFLOXACIN
     Indication: Pyrexia
     Dosage: 500 MILLIGRAM, BID
     Route: 065
     Dates: start: 20180504, end: 20180516
  32. CALCIUM GLUCONATE [Concomitant]
     Active Substance: CALCIUM GLUCONATE
     Indication: Adjusted calcium
     Dosage: UNK
     Route: 065
     Dates: start: 20180908, end: 20180910
  33. AUGMENTIN [Concomitant]
     Active Substance: AMOXICILLIN\CLAVULANATE POTASSIUM
     Indication: Pyrexia
     Dosage: UNK
     Route: 065
     Dates: start: 201804, end: 2018
  34. AMLODIPINE [Concomitant]
     Active Substance: AMLODIPINE BESYLATE
     Indication: Blood pressure increased
     Dosage: UNK, UNK, QD
     Route: 065
     Dates: start: 20180913, end: 20180913
  35. ALPRAZOLAM [Concomitant]
     Active Substance: ALPRAZOLAM
     Indication: Anxiety
     Dosage: 10 GTT DROPS, QD
     Route: 065
     Dates: start: 20180913, end: 20180913

REACTIONS (10)
  - Hernia [Recovered/Resolved]
  - Device related sepsis [Recovered/Resolved]
  - Vitreous haemorrhage [Recovered/Resolved]
  - Gastroenteritis [Recovered/Resolved]
  - Mass [Unknown]
  - Groin pain [Recovered/Resolved]
  - Dyspepsia [Recovered/Resolved]
  - Limb injury [Recovered/Resolved]
  - Vomiting [Recovered/Resolved]
  - Chest pain [Recovered/Resolved]

NARRATIVE: CASE EVENT DATE: 20150529
